FAERS Safety Report 6854865-4 (Version None)
Quarter: 2010Q3

REPORT INFORMATION
  Report Type: 
  Country: None (occurrence: None)
  Receive Date: 20100717
  Receipt Date: 20080205
  Transmission Date: 20110219
  Serious: Yes (Other)
  Sender: FDA-Public Use
  Company Number: US-PFIZER INC-2008004421

PATIENT
  Sex: Female
  Weight: 70.3 kg

DRUGS (3)
  1. CHANTIX [Suspect]
     Indication: SMOKING CESSATION THERAPY
     Route: 048
     Dates: start: 20080104, end: 20080106
  2. ATENOLOL [Concomitant]
  3. IMITREX [Concomitant]
     Indication: MIGRAINE WITH AURA

REACTIONS (3)
  - BLINDNESS TRANSIENT [None]
  - MIGRAINE [None]
  - PAIN [None]
